FAERS Safety Report 6454851-2 (Version None)
Quarter: 2009Q4

REPORT INFORMATION
  Report Type: 
  Country: None (occurrence: None)
  Receive Date: 20091124
  Receipt Date: 20091117
  Transmission Date: 20100525
  Serious: Yes (Other)
  Sender: FDA-Public Use
  Company Number: HR-PFIZER INC-2009298649

PATIENT
  Age: 2 Year
  Sex: Male

DRUGS (2)
  1. SOLU-MEDROL [Suspect]
     Route: 042
  2. IBUPROFEN [Concomitant]

REACTIONS (3)
  - AGGRESSION [None]
  - EPISTAXIS [None]
  - NERVOUSNESS [None]
